FAERS Safety Report 16347187 (Version 2)
Quarter: 2019Q2

REPORT INFORMATION
  Report Type: Spontaneous
  Country: GB (occurrence: GB)
  Receive Date: 20190523
  Receipt Date: 20190604
  Transmission Date: 20190711
  Serious: Yes (Life-Threatening, Other)
  Sender: FDA-Public Use
  Company Number: GB-PFIZER INC-2019211313

PATIENT
  Age: 62 Year
  Sex: Female

DRUGS (7)
  1. NOREPINEPHRINE BITARTRATE. [Suspect]
     Active Substance: NOREPINEPHRINE BITARTRATE
     Dosage: 0.9 UG/KG/MINUTE
  2. HYDROCORTISONE SODIUM SUCCINATE [Suspect]
     Active Substance: HYDROCORTISONE SODIUM SUCCINATE
     Indication: SHOCK
     Dosage: 200 MG, UNK
     Route: 042
  3. DOBUTAMINE [Suspect]
     Active Substance: DOBUTAMINE\DOBUTAMINE HYDROCHLORIDE
     Dosage: MAXIMUM OF 2.5 UG/KG/MINUTE
  4. NOREPINEPHRINE BITARTRATE. [Suspect]
     Active Substance: NOREPINEPHRINE BITARTRATE
     Indication: MEAN ARTERIAL PRESSURE
     Dosage: 0.56 UG/KG/ MINUTE
  5. HYDROCORTISONE SODIUM SUCCINATE [Suspect]
     Active Substance: HYDROCORTISONE SODIUM SUCCINATE
     Dosage: 50 MG, 4X/DAY (SIX-HOURLY)
     Route: 042
  6. NIMODIPINE. [Concomitant]
     Active Substance: NIMODIPINE
     Dosage: UNK
  7. CALCIUM GLUCONATE. [Suspect]
     Active Substance: CALCIUM GLUCONATE
     Dosage: UNK
     Route: 042

REACTIONS (3)
  - Myocardial stunning [Recovered/Resolved]
  - Condition aggravated [Recovered/Resolved]
  - Drug ineffective [Unknown]
